FAERS Safety Report 24624774 (Version 1)
Quarter: 2024Q4

REPORT INFORMATION
  Report Type: Spontaneous
  Country: GB (occurrence: GB)
  Receive Date: 20241115
  Receipt Date: 20241115
  Transmission Date: 20250115
  Serious: Yes (Life-Threatening, Other)
  Sender: MYLAN
  Company Number: None

PATIENT
  Age: 15 Year
  Sex: Male
  Weight: 45 kg

DRUGS (36)
  1. LINEZOLID [Suspect]
     Active Substance: LINEZOLID
     Indication: Disseminated tuberculosis
     Dosage: 600 MILLIGRAM, BID (600 MG BD)
     Route: 065
     Dates: end: 20241019
  2. ALFACALCIDOL [Concomitant]
     Active Substance: ALFACALCIDOL
     Dosage: 250 NANOGRAM, QD (ORAL, EVERY 24 HOURS)
     Route: 048
  3. ALTEPLASE [Concomitant]
     Active Substance: ALTEPLASE
     Dosage: UNK, 2MG IN 2ML FOR LINE PATENCY, 2 ML, IV LINE LOCK, AS REQUIRED, PRN
     Route: 065
  4. BISOPROLOL [Concomitant]
     Active Substance: BISOPROLOL
     Dosage: 3.75 MILLIGRAM, QD (3.75 MG, ORAL, EVERY 24 HOURS)
     Route: 048
  5. CHLOROTHIAZIDE [Concomitant]
     Active Substance: CHLOROTHIAZIDE
     Dosage: 250 MILLIGRAM, BID (250 MG, ENTERAL, TWICE A DAY)
     Route: 065
  6. AMOXICILLIN\CLAVULANATE POTASSIUM [Concomitant]
     Active Substance: AMOXICILLIN\CLAVULANATE POTASSIUM
     Dosage: 500/125; 1 DOSAGE FORM, TID (1 TABLET(S), ORAL, THREE TIMES A DAY)
     Route: 048
  7. CHOLECALCIFEROL [Concomitant]
     Active Substance: CHOLECALCIFEROL
     Dosage: 1 DOSAGE FORM, QD (1 CAP(S), ORAL, EVERY 24 HOURS)
     Route: 048
  8. CYCLIZINE [Concomitant]
     Active Substance: CYCLIZINE
     Dosage: 50 MILLIGRAM, QD (50 MG, ORAL, IN THE EVENING)
     Route: 048
  9. CYCLOSERINE [Concomitant]
     Active Substance: CYCLOSERINE
     Dosage: 500 MILLIGRAM, QD (500 MG, ORAL, EVERY 24 HOURS)
     Route: 048
  10. DARBEPOETIN ALFA [Concomitant]
     Active Substance: DARBEPOETIN ALFA
     Dosage: 30 MICROGRAM (30 MICROGRAM, SUBCUTANEOUS, ONCE A WEEK ON THE SAME DAY EACH WEEK)
     Route: 058
  11. FOLIC ACID [Concomitant]
     Active Substance: FOLIC ACID
     Dosage: 5 MILLIGRAM, QD (5 MG, ORAL, DAILY AT 10AM)
     Route: 048
  12. FUROSEMIDE [Concomitant]
     Active Substance: FUROSEMIDE
     Dosage: 20 MILLIGRAM, QD (20 MG, INTRAVENOUS, IN THE EVENING)
     Route: 042
  13. FUROSEMIDE [Concomitant]
     Active Substance: FUROSEMIDE
     Dosage: 40 MILLIGRAM, BID (40 MG, INTRAVENOUS, TWICE A DAY AT 8.00AM AND 12 NOON)
     Route: 042
  14. BUTYLSCOPOLAMINE BROMIDE [Concomitant]
     Active Substance: BUTYLSCOPOLAMINE BROMIDE
     Dosage: 20 MILLIGRAM, QID (20 MG, ORAL, FOUR TIMES A DAY, PRN)
     Route: 048
  15. LEVOFLOXACIN [Concomitant]
     Active Substance: LEVOFLOXACIN
     Dosage: 500 MILLIGRAM, QD (500 MG, ORAL, EVERY 24 HOURS)
     Route: 048
  16. LINEZOLID [Concomitant]
     Active Substance: LINEZOLID
     Dosage: 600 MILLIGRAM, BID (600 MG, ORAL, EVERY TWELVE HOURS)
     Route: 048
  17. MELATONIN [Concomitant]
     Active Substance: MELATONIN
     Dosage: 2 MILLIGRAM, QD (2 MG, ORAL, NOCTE)
     Route: 048
  18. MEROPENEM [Concomitant]
     Active Substance: MEROPENEM
     Dosage: 900 MILLIGRAM, BID (900 MG, INTRAVENOUS, EVERY TWELVE HOURS)
     Route: 042
  19. MORPHINE [Concomitant]
     Active Substance: MORPHINE
     Dosage: 10MG/5ML; 4 MILLIGRAM, QID (4 MG, ENTERAL, EVERY SIX HOURS, PRN)
     Route: 065
  20. NYSTATIN [Concomitant]
     Active Substance: NYSTATIN
     Dosage: 100,000UNITS/ML; 1 MILLILITER, QID (1 ML, ORAL, FOUR TIMES A DAY)
     Route: 048
  21. Octenisan [Concomitant]
     Dosage: UNK (1 APPLICATION, TOPICAL, NOON)
     Route: 061
  22. OLIVE OIL [Concomitant]
     Active Substance: OLIVE OIL
     Dosage: 12 DROP, BID (6 DROP(S), BOTH EARS, TWICE A DAY)
     Route: 065
  23. PANTOPRAZOLE [Concomitant]
     Active Substance: PANTOPRAZOLE
     Dosage: 40 MILLIGRAM, QD (40 MG, INTRAVENOUS, DAILY )
     Route: 042
  24. ACETAMINOPHEN [Concomitant]
     Active Substance: ACETAMINOPHEN
     Dosage: 500 MILLIGRAM, QID (500 MG, ORAL, FOUR TIMES A DAY, PRN)
     Route: 048
  25. RANITIDINE HYDROCHLORIDE [Concomitant]
     Active Substance: RANITIDINE HYDROCHLORIDE
     Dosage: 10 MILLILITER, 6XD (10 ML, ORAL, EVERY FOUR HOURS, PRN)
     Route: 048
  26. PREDNISOLONE [Concomitant]
     Active Substance: PREDNISOLONE
     Dosage: 30 MILLIGRAM, QD (30 MG, ORAL, DAILY AT 10AM)
     Route: 048
  27. PYRIDOXINE [Concomitant]
     Active Substance: PYRIDOXINE
     Dosage: 50 MILLIGRAM, BID (50 MG, ORAL, EVERY TWELVE HOURS)
     Route: 048
  28. RIFAMPIN [Concomitant]
     Active Substance: RIFAMPIN
     Dosage: 600 MILLIGRAM, QD (600 MG, ORAL, DAILY AT 10AM)
     Route: 048
  29. SACUBITRIL\VALSARTAN [Concomitant]
     Active Substance: SACUBITRIL\VALSARTAN
     Dosage: 1 DOSAGE FORM, BID (1 TABLET(S), ORAL, TWICE A DAY AT 08:00 AND 20:00)
     Route: 048
  30. ALBUTEROL [Concomitant]
     Active Substance: ALBUTEROL
     Dosage: 5 MILLIGRAM (5 MG, INHALED, AS REQUIRED, PRN)
     Route: 055
  31. SIMPLE LINCTUS [Concomitant]
     Active Substance: AMARANTH\CHLOROFORM\CITRIC ACID MONOHYDRATE\PIMPINELLA ANISUM WHOLE
     Dosage: 5 MILLILITER, QID (5 ML, ORAL, FOUR TIMES A DAY, PRN)
     Route: 048
  32. SODIUM BICARBONATE [Concomitant]
     Active Substance: SODIUM BICARBONATE
     Dosage: 500 MILLIGRAM, TID (500 MG, ORAL, THREE TIMES A DAY AT 0800, 1400 AND 2200)
     Route: 048
  33. SODIUM CHLORIDE [Concomitant]
     Active Substance: SODIUM CHLORIDE
     Dosage: 3 MILLILITER, QID ((NEBULISED USE),3 ML, INHALED, FOUR TIMES A DAY, PRN)
     Route: 065
  34. SODIUM CHLORIDE [Concomitant]
     Active Substance: SODIUM CHLORIDE
     Dosage: 4 MILLILITER, QD (4 ML, INHALED, ONCE A DAY, PRN)
     Route: 055
  35. SUCRALFATE [Concomitant]
     Active Substance: SUCRALFATE
     Dosage: 1 GRAM, QID (1 GRAM, ORAL, FOUR TIMES A DAY BEFORE MEALS AND NOCTE, PRN)
     Route: 048
  36. TAUROLIDINE [Concomitant]
     Active Substance: TAUROLIDINE
     Dosage: 2 MILLILITER (2 ML, IV LINE LOCK, AS REQUIRED, PRN )
     Route: 042

REACTIONS (2)
  - Lactic acidosis [Recovered/Resolved]
  - Medication error [Unknown]

NARRATIVE: CASE EVENT DATE: 20241019
